FAERS Safety Report 23840770 (Version 1)
Quarter: 2024Q2

REPORT INFORMATION
  Report Type: Spontaneous
  Country: US (occurrence: US)
  Receive Date: 20240510
  Receipt Date: 20240510
  Transmission Date: 20240716
  Serious: Yes (Other)
  Sender: FDA-Public Use
  Company Number: US-ORGANON-O2405USA000141

PATIENT
  Sex: Female
  Weight: 86.1 kg

DRUGS (1)
  1. NEXPLANON [Suspect]
     Active Substance: ETONOGESTREL
     Indication: Contraception
     Dosage: 1 IMPLANT (IN LEFT ARM) FOR 3 YEARS
     Route: 059
     Dates: start: 20220125

REACTIONS (5)
  - Pregnancy with implant contraceptive [Unknown]
  - Menstruation delayed [Not Recovered/Not Resolved]
  - Abdominal discomfort [Not Recovered/Not Resolved]
  - Nipple pain [Not Recovered/Not Resolved]
  - Unintended pregnancy [Unknown]

NARRATIVE: CASE EVENT DATE: 20240101
